FAERS Safety Report 18412911 (Version 2)
Quarter: 2020Q4

REPORT INFORMATION
  Report Type: Spontaneous
  Country: US (occurrence: US)
  Receive Date: 20201021
  Receipt Date: 20201228
  Transmission Date: 20210114
  Serious: Yes (Other)
  Sender: FDA-Public Use
  Company Number: US-TEVA-2020-US-1840552

PATIENT
  Age: 59 Year
  Sex: Female

DRUGS (20)
  1. HYDROCODONE AND ACETAMINOPHEN [Suspect]
     Active Substance: ACETAMINOPHEN\HYDROCODONE
     Indication: PAIN
     Dosage: 10/325 MG
     Route: 065
  2. ULTRAM [Suspect]
     Active Substance: TRAMADOL HYDROCHLORIDE
     Route: 065
  3. OXYCODONE AND ACETAMINOPHEN [Suspect]
     Active Substance: ACETAMINOPHEN\OXYCODONE HYDROCHLORIDE
     Indication: PAIN
     Route: 065
  4. OXYCONTIN [Suspect]
     Active Substance: OXYCODONE HYDROCHLORIDE
     Route: 065
  5. TRAMADOL ZYDUS [Suspect]
     Active Substance: TRAMADOL HYDROCHLORIDE
     Indication: PAIN
     Route: 065
  6. GLYBURIDE. [Concomitant]
     Active Substance: GLYBURIDE
  7. BYSTOLIC [Concomitant]
     Active Substance: NEBIVOLOL HYDROCHLORIDE
  8. HYDROCODONE AND ACETAMINOPHEN [Suspect]
     Active Substance: ACETAMINOPHEN\HYDROCODONE
     Dosage: 10/325 MG
     Route: 065
     Dates: start: 20180125, end: 20180125
  9. DILAUDID [Suspect]
     Active Substance: HYDROMORPHONE HYDROCHLORIDE
     Route: 065
  10. OXYCODONE KVK [Suspect]
     Active Substance: OXYCODONE HYDROCHLORIDE
     Indication: PAIN
     Dosage: FORM OF ADMIN: EXTENDED-RELEASE TABLETS
     Route: 065
  11. ULTRAM [Suspect]
     Active Substance: TRAMADOL HYDROCHLORIDE
     Route: 065
  12. ZANAFLEX [Concomitant]
     Active Substance: TIZANIDINE HYDROCHLORIDE
  13. OXYCODONE ACTAVIS [Suspect]
     Active Substance: OXYCODONE HYDROCHLORIDE
     Indication: PAIN
     Dosage: FORM OF ADMIN: IMMEDIATE-RELEASE TABLETS
     Route: 065
  14. SYNTHROID [Concomitant]
     Active Substance: LEVOTHYROXINE SODIUM
  15. LUNESTA [Concomitant]
     Active Substance: ESZOPICLONE
  16. TRAMADOL. [Suspect]
     Active Substance: TRAMADOL
     Route: 065
  17. RYZOLT [Suspect]
     Active Substance: TRAMADOL HYDROCHLORIDE
     Route: 065
  18. CONZIP [Suspect]
     Active Substance: TRAMADOL HYDROCHLORIDE
     Route: 065
  19. CLONIDINE. [Concomitant]
     Active Substance: CLONIDINE
  20. NORAVASAC [Concomitant]

REACTIONS (13)
  - Drug dependence [Recovered/Resolved]
  - Substance use disorder [Recovered/Resolved]
  - Constipation [Recovered/Resolved]
  - Pain [Recovered/Resolved]
  - Mood swings [Recovered/Resolved]
  - Stress [Recovered/Resolved]
  - Abdominal discomfort [Recovered/Resolved]
  - Tooth injury [Not Recovered/Not Resolved]
  - Sleep disorder [Unknown]
  - Personal relationship issue [Recovered/Resolved]
  - Immune system disorder [Unknown]
  - Renal disorder [Unknown]
  - Economic problem [Recovered/Resolved]

NARRATIVE: CASE EVENT DATE: 201610
